FAERS Safety Report 7813841-5 (Version None)
Quarter: 2011Q4

REPORT INFORMATION
  Report Type: 
  Country: None (occurrence: None)
  Receive Date: 20111014
  Receipt Date: 20111008
  Transmission Date: 20120403
  Serious: Yes (Other)
  Sender: FDA-Public Use
  Company Number: AU-JNJFOC-20111004431

PATIENT
  Sex: Male

DRUGS (5)
  1. STELARA [Suspect]
     Route: 058
     Dates: start: 20110201
  2. STELARA [Suspect]
     Route: 058
     Dates: start: 20110712
  3. STELARA [Suspect]
     Route: 058
     Dates: start: 20111008
  4. STELARA [Suspect]
     Route: 058
     Dates: start: 20110104
  5. STELARA [Suspect]
     Indication: PSORIASIS
     Route: 058
     Dates: start: 20110426

REACTIONS (1)
  - BLOOD GLUCOSE FLUCTUATION [None]
